FAERS Safety Report 12283738 (Version 1)
Quarter: 2016Q2

REPORT INFORMATION
  Report Type: Spontaneous
  Country: US (occurrence: US)
  Receive Date: 20160419
  Receipt Date: 20160419
  Transmission Date: 20160815
  Serious: No
  Sender: FDA-Public Use
  Company Number: US-BANPHARM-20154289

PATIENT
  Age: 74 Year
  Sex: Female
  Weight: 65.77 kg

DRUGS (5)
  1. DIGESTIVE ENZYME [Concomitant]
     Active Substance: UNSPECIFIED INGREDIENT
  2. ASTAXANTHIN [Concomitant]
  3. MELATONIN [Concomitant]
     Active Substance: MELATONIN
  4. ALEVE [Suspect]
     Active Substance: NAPROXEN SODIUM
     Indication: ARTHRITIS
     Dosage: 1 DF, PRN,
     Route: 048
     Dates: start: 20150928
  5. OMEGA KRILL OIL [Concomitant]

REACTIONS (1)
  - Insomnia [Not Recovered/Not Resolved]

NARRATIVE: CASE EVENT DATE: 20150928
